FAERS Safety Report 21638498 (Version 1)
Quarter: 2022Q4

REPORT INFORMATION
  Report Type: Spontaneous
  Country: US (occurrence: US)
  Receive Date: 20221124
  Receipt Date: 20221124
  Transmission Date: 20230113
  Serious: Yes (Other)
  Sender: FDA-Public Use
  Company Number: US-SA-SAC20221123000575

PATIENT
  Age: 75 Year
  Sex: Female

DRUGS (1)
  1. KEVZARA [Suspect]
     Active Substance: SARILUMAB
     Indication: Rheumatoid arthritis
     Dosage: 200MG; QOW
     Route: 058
     Dates: start: 202211

REACTIONS (3)
  - Atrial fibrillation [Unknown]
  - Rash [Unknown]
  - Pruritus [Not Recovered/Not Resolved]
